FAERS Safety Report 4786638-0 (Version None)
Quarter: 2005Q4

REPORT INFORMATION
  Report Type: 
  Country: None (occurrence: None)
  Receive Date: 20051003
  Receipt Date: 20051003
  Transmission Date: 20060501
  Serious: Yes (Hospitalization)
  Sender: FDA-Public Use
  Company Number: None

PATIENT
  Age: 47 Year
  Sex: Female
  Weight: 113.3993 kg

DRUGS (1)
  1. LEVAQUIN [Suspect]
     Indication: POSTOPERATIVE INFECTION
     Dosage: 500 QD PO
     Route: 048
     Dates: start: 20050906, end: 20050909

REACTIONS (7)
  - ACCIDENTAL EXPOSURE [None]
  - DISORIENTATION [None]
  - DYSPNOEA [None]
  - HEADACHE [None]
  - IMPAIRED DRIVING ABILITY [None]
  - INCORRECT DOSE ADMINISTERED [None]
  - PANIC ATTACK [None]
